FAERS Safety Report 22029981 (Version 3)
Quarter: 2023Q1

REPORT INFORMATION
  Report Type: Report from Study
  Country: US (occurrence: US)
  Receive Date: 20230223
  Receipt Date: 20230328
  Transmission Date: 20230418
  Serious: Yes (Life-Threatening, Hospitalization, Other)
  Sender: FDA-Public Use
  Company Number: US-002147023-NVSC2023US042298

PATIENT
  Sex: Female

DRUGS (3)
  1. GILENYA [Suspect]
     Active Substance: FINGOLIMOD HYDROCHLORIDE
     Indication: Multiple sclerosis
     Dosage: UNK
     Route: 048
     Dates: start: 2012, end: 20221224
  2. KESIMPTA [Suspect]
     Active Substance: OFATUMUMAB
     Indication: Multiple sclerosis
     Dosage: 20 MG, QW
     Route: 058
     Dates: start: 20230311
  3. KESIMPTA [Suspect]
     Active Substance: OFATUMUMAB
     Dosage: UNK (SECOND DOSE)
     Route: 065
     Dates: start: 20230318

REACTIONS (19)
  - Pneumonia legionella [Recovering/Resolving]
  - Renal failure [Unknown]
  - Gait disturbance [Unknown]
  - Diabetes mellitus [Not Recovered/Not Resolved]
  - Thrombosis [Recovering/Resolving]
  - Weight decreased [Unknown]
  - Muscle injury [Not Recovered/Not Resolved]
  - Fall [Unknown]
  - Contusion [Unknown]
  - Nodule [Not Recovered/Not Resolved]
  - Injection site pain [Recovering/Resolving]
  - Peripheral swelling [Unknown]
  - Chills [Recovering/Resolving]
  - Pain [Recovered/Resolved]
  - Abdominal discomfort [Recovered/Resolved]
  - Pain in extremity [Not Recovered/Not Resolved]
  - Arthralgia [Not Recovered/Not Resolved]
  - Fatigue [Recovered/Resolved]
  - Accidental exposure to product [Unknown]

NARRATIVE: CASE EVENT DATE: 20120101
